FAERS Safety Report 16634832 (Version 2)
Quarter: 2019Q3

REPORT INFORMATION
  Report Type: Spontaneous
  Country: US (occurrence: US)
  Receive Date: 20190726
  Receipt Date: 20190816
  Transmission Date: 20191004
  Serious: No
  Sender: FDA-Public Use
  Company Number: US-GILEAD-2019-0420122

PATIENT
  Age: 27 Year
  Sex: Male
  Weight: 78.46 kg

DRUGS (1)
  1. TRUVADA [Suspect]
     Active Substance: EMTRICITABINE\TENOFOVIR DISOPROXIL FUMARATE
     Indication: PRODUCT USED FOR UNKNOWN INDICATION
     Dosage: 200/300
     Route: 048

REACTIONS (4)
  - Pain [Unknown]
  - Tremor [Unknown]
  - Vomiting [Unknown]
  - Myalgia [Unknown]
